FAERS Safety Report 6278280-X (Version None)
Quarter: 2009Q3

REPORT INFORMATION
  Report Type: 
  Country: None (occurrence: None)
  Receive Date: 20090722
  Receipt Date: 20090714
  Transmission Date: 20100115
  Serious: Yes (Hospitalization)
  Sender: FDA-Public Use
  Company Number: US-AVENTIS-200915888US

PATIENT
  Age: 89 Year
  Sex: Female

DRUGS (4)
  1. LANTUS [Suspect]
     Indication: TYPE 1 DIABETES MELLITUS
     Dosage: DOSE: 14-18 TOOK AT NIGHT, CHANGED TO IN MORNING
     Route: 058
     Dates: start: 20010101
  2. LANTUS [Suspect]
     Dosage: DOSE: TOOK AT NIGHT, CHANGED TO MORNING
     Route: 058
     Dates: start: 20070101
  3. HUMALOG [Concomitant]
     Dosage: DOSE: UNK
  4. NOVOLOG [Concomitant]
     Dosage: DOSE: UNK

REACTIONS (5)
  - ANXIETY [None]
  - ASTHENIA [None]
  - BLOOD GLUCOSE INCREASED [None]
  - CARDIAC DISORDER [None]
  - DIZZINESS [None]
